FAERS Safety Report 11770631 (Version 1)
Quarter: 2015Q4

REPORT INFORMATION
  Report Type: Spontaneous
  Country: PL (occurrence: PL)
  Receive Date: 20151123
  Receipt Date: 20151123
  Transmission Date: 20160304
  Serious: Yes (Hospitalization, Other)
  Sender: FDA-Public Use
  Company Number: PL-IPCA LABORATORIES LIMITED-IPC201511-000757

PATIENT
  Age: 8 Year
  Sex: Female

DRUGS (1)
  1. WARFARIN [Suspect]
     Active Substance: WARFARIN

REACTIONS (6)
  - Cardiac failure congestive [Unknown]
  - Peritoneal haemorrhage [Unknown]
  - Haemothorax [Unknown]
  - Respiratory failure [Unknown]
  - Pericardial haemorrhage [Unknown]
  - Toxicity to various agents [Unknown]
